FAERS Safety Report 15561178 (Version 1)
Quarter: 2018Q4

REPORT INFORMATION
  Report Type: Spontaneous
  Country: JP (occurrence: JP)
  Receive Date: 20181029
  Receipt Date: 20181029
  Transmission Date: 20190205
  Serious: Yes (Other)
  Sender: FDA-Public Use
  Company Number: JP-PFIZER INC-2018440974

PATIENT
  Age: 77 Year
  Sex: Male

DRUGS (1)
  1. MEROPEN [Suspect]
     Active Substance: MEROPENEM
     Dosage: UNK

REACTIONS (4)
  - Hepatic function abnormal [Unknown]
  - Platelet count decreased [Unknown]
  - Renal impairment [Unknown]
  - Pyrexia [Unknown]
